FAERS Safety Report 7394122-3 (Version None)
Quarter: 2011Q2

REPORT INFORMATION
  Report Type: 
  Country: None (occurrence: None)
  Receive Date: 20110405
  Receipt Date: 20110325
  Transmission Date: 20111010
  Serious: Yes (Other)
  Sender: FDA-Public Use
  Company Number: US-BAXTER-2011BH008645

PATIENT
  Age: 63 Year
  Sex: Female

DRUGS (5)
  1. ASPIRIN [Concomitant]
     Indication: PRODUCT USED FOR UNKNOWN INDICATION
     Route: 065
  2. PEGFILGRASTIM [Suspect]
     Indication: BREAST CANCER
     Route: 058
  3. DOXORUBICIN [Suspect]
     Indication: BREAST CANCER
     Route: 042
  4. PEPCID AC [Concomitant]
     Indication: PRODUCT USED FOR UNKNOWN INDICATION
     Route: 065
  5. CYCLOPHOSPHAMIDE [Suspect]
     Indication: BREAST CANCER
     Route: 042

REACTIONS (2)
  - ARTERIAL THROMBOSIS [None]
  - PAIN IN EXTREMITY [None]
